FAERS Safety Report 6702999-7 (Version None)
Quarter: 2010Q2

REPORT INFORMATION
  Report Type: 
  Country: None (occurrence: None)
  Receive Date: 20100429
  Receipt Date: 20100429
  Transmission Date: 20101027
  Serious: Yes (Other)
  Sender: FDA-Public Use
  Company Number: None

PATIENT
  Age: 19 Year
  Sex: Male
  Weight: 66 kg

DRUGS (5)
  1. THYMOGLOBULIN [Suspect]
     Indication: APLASTIC ANAEMIA
     Dosage: 3.5 MG/KG (210MG) IV
     Route: 042
     Dates: start: 20091009
  2. THYMOGLOBULIN [Suspect]
     Indication: APLASTIC ANAEMIA
     Dosage: 3.5 MG/KG (210MG) IV
     Route: 042
     Dates: start: 20091011
  3. THYMOGLOBULIN [Suspect]
     Indication: APLASTIC ANAEMIA
     Dosage: 3.5 MG/KG (210MG) IV
     Route: 042
     Dates: start: 20091012
  4. THYMOGLOBULIN [Suspect]
     Indication: APLASTIC ANAEMIA
     Dosage: 3.5 MG/KG (210MG) IV
     Route: 042
     Dates: start: 20091013
  5. THYMOGLOBULIN [Suspect]
     Indication: APLASTIC ANAEMIA
     Dosage: 3.5 MG/KG (210MG) IV
     Route: 042
     Dates: start: 20091014

REACTIONS (4)
  - HYPOTENSION [None]
  - NO THERAPEUTIC RESPONSE [None]
  - PYREXIA [None]
  - TACHYCARDIA [None]
